FAERS Safety Report 6530911-2 (Version None)
Quarter: 2010Q1

REPORT INFORMATION
  Report Type: 
  Country: None (occurrence: None)
  Receive Date: 20100108
  Receipt Date: 20090529
  Transmission Date: 20100710
  Serious: Yes (Other)
  Sender: FDA-Public Use
  Company Number: A0787400A

PATIENT
  Age: 56 Year
  Sex: Female

DRUGS (9)
  1. LOVAZA [Suspect]
     Dosage: 2CAP TWICE PER DAY
     Route: 048
     Dates: start: 20090501
  2. THYROID TAB [Concomitant]
  3. SULFASALAZINE [Concomitant]
  4. POTASSIUM [Concomitant]
  5. HYDROXYCHLOROQUINE SULFATE [Concomitant]
  6. METHOTREXATE [Concomitant]
  7. LISINOPRIL [Concomitant]
  8. HYDROCHLOROTHIAZIDE [Concomitant]
  9. SYNTHROID [Concomitant]

REACTIONS (2)
  - ALANINE AMINOTRANSFERASE INCREASED [None]
  - ASPARTATE AMINOTRANSFERASE INCREASED [None]
